FAERS Safety Report 9528740 (Version 1)
Quarter: 2013Q1

REPORT INFORMATION
  Report Type: Spontaneous
  Country: US (occurrence: None)
  Receive Date: 20130314
  Receipt Date: 20130314
  Transmission Date: 20140127
  Serious: No
  Sender: FDA-Public Use
  Company Number: 1211USA012730

PATIENT
  Age: 67 Year
  Sex: Male

DRUGS (3)
  1. VICTRELIS [Suspect]
     Indication: HEPATITIS C
     Route: 048
     Dates: start: 20121116
  2. REBETOL (RIBAVIRIN) CAPSULE [Suspect]
     Indication: HEPATITIS C
     Route: 048
     Dates: start: 20121019
  3. PEGASYS [Concomitant]

REACTIONS (5)
  - Nocturia [None]
  - Fatigue [None]
  - Dyspnoea [None]
  - Anaemia [None]
  - Insomnia [None]
